FAERS Safety Report 12447642 (Version 1)
Quarter: 2016Q2

REPORT INFORMATION
  Report Type: Spontaneous
  Country: US (occurrence: None)
  Receive Date: 20160607
  Receipt Date: 20160607
  Transmission Date: 20160815
  Serious: Yes (Hospitalization)
  Sender: FDA-Public Use
  Company Number: None

PATIENT
  Age: 60 Year
  Sex: Male
  Weight: 72.2 kg

DRUGS (23)
  1. OXYCODONE [Concomitant]
     Active Substance: OXYCODONE
  2. SENNA LAXATIVE [Concomitant]
     Active Substance: SENNOSIDES
  3. AMLODIPINE [Concomitant]
     Active Substance: AMLODIPINE BESYLATE
  4. DACLATASVIR 60MG BMS [Suspect]
     Active Substance: DACLATASVIR
     Indication: HEPATITIS C
     Route: 048
     Dates: start: 20160223
  5. SOFOSBUVIR 400MG GILEAD [Suspect]
     Active Substance: SOFOSBUVIR
     Indication: HEPATITIS C
     Route: 048
     Dates: start: 20160223
  6. PROPANOLOL [Concomitant]
     Active Substance: PROPRANOLOL HYDROCHLORIDE
  7. LATANOPROST. [Concomitant]
     Active Substance: LATANOPROST
  8. NOVOLOG [Concomitant]
     Active Substance: INSULIN ASPART
  9. LOSARTAN. [Concomitant]
     Active Substance: LOSARTAN
  10. VITAMIN D [Concomitant]
     Active Substance: CHOLECALCIFEROL
  11. ZOLPIDEM [Concomitant]
     Active Substance: ZOLPIDEM\ZOLPIDEM TARTRATE
  12. GABAPENTIN. [Concomitant]
     Active Substance: GABAPENTIN
  13. LASIX [Concomitant]
     Active Substance: FUROSEMIDE
  14. ISOPHANE INSULIN [Concomitant]
     Active Substance: INSULIN NOS
  15. CLONIDINE. [Concomitant]
     Active Substance: CLONIDINE
  16. DOCUSATE SODIUM. [Concomitant]
     Active Substance: DOCUSATE SODIUM
  17. COMBIVENT [Concomitant]
     Active Substance: ALBUTEROL SULFATE\IPRATROPIUM BROMIDE
  18. NALOXONE [Concomitant]
     Active Substance: NALOXONE
  19. ASPIRIN. [Concomitant]
     Active Substance: ASPIRIN
  20. CHOLECALCIFEROL [Concomitant]
     Active Substance: CHOLECALCIFEROL
  21. TAMSULOSIN [Concomitant]
     Active Substance: TAMSULOSIN
  22. GENERLAC [Suspect]
     Active Substance: LACTULOSE
  23. CAPSAICIN. [Concomitant]
     Active Substance: CAPSAICIN

REACTIONS (8)
  - Dizziness [None]
  - Nausea [None]
  - Hypoglycaemia [None]
  - Radicular pain [None]
  - Back pain [None]
  - Vomiting [None]
  - Diplopia [None]
  - Pain in extremity [None]

NARRATIVE: CASE EVENT DATE: 20160325
